FAERS Safety Report 15428991 (Version 1)
Quarter: 2018Q3

REPORT INFORMATION
  Report Type: Spontaneous
  Country: US (occurrence: US)
  Receive Date: 20180919
  Receipt Date: 20180919
  Transmission Date: 20181010
  Serious: Yes (Hospitalization)
  Sender: FDA-Public Use
  Company Number: None

PATIENT
  Age: 73 Year
  Sex: Male
  Weight: 85.7 kg

DRUGS (12)
  1. LEUCOVORIN CALCIUM. [Suspect]
     Active Substance: LEUCOVORIN CALCIUM
     Dates: end: 20180628
  2. FISH OIL [Concomitant]
     Active Substance: FISH OIL
  3. TRAZODONE [Concomitant]
     Active Substance: TRAZODONE HYDROCHLORIDE
  4. ZOLOFT [Concomitant]
     Active Substance: SERTRALINE HYDROCHLORIDE
  5. LISINOPRIL?HYDROCHLOROTHIAZIDE [Concomitant]
     Active Substance: HYDROCHLOROTHIAZIDE\LISINOPRIL
  6. ZOSTRIX ORIGINAL STRENGTH [Concomitant]
     Active Substance: CAPSAICIN
  7. PROSCAR [Concomitant]
     Active Substance: FINASTERIDE
  8. LIPITOR [Concomitant]
     Active Substance: ATORVASTATIN CALCIUM
  9. 5?FLUOROURACIL (5?FU) [Suspect]
     Active Substance: FLUOROURACIL
     Dates: end: 20180628
  10. ALLOPURINOL. [Concomitant]
     Active Substance: ALLOPURINOL
  11. CAMPTOSAR [Suspect]
     Active Substance: IRINOTECAN HYDROCHLORIDE
     Dates: end: 20180628
  12. ELOXATIN [Suspect]
     Active Substance: OXALIPLATIN
     Dates: end: 20180628

REACTIONS (1)
  - Ascites [None]

NARRATIVE: CASE EVENT DATE: 20180912
